FAERS Safety Report 6929754-7 (Version None)
Quarter: 2010Q3

REPORT INFORMATION
  Report Type: 
  Country: None (occurrence: None)
  Receive Date: 20100813
  Receipt Date: 20100809
  Transmission Date: 20110219
  Serious: Yes (Other)
  Sender: FDA-Public Use
  Company Number: 2010SP043252

PATIENT
  Sex: Female

DRUGS (1)
  1. CLARITIN [Suspect]
     Dosage: 10 MG; ONCE; PO
     Route: 048
     Dates: start: 20100805

REACTIONS (1)
  - DRUG HYPERSENSITIVITY [None]
